FAERS Safety Report 20754815 (Version 2)
Quarter: 2023Q2

REPORT INFORMATION
  Report Type: Report from Study
  Country: CA (occurrence: CA)
  Receive Date: 20220427
  Receipt Date: 20230614
  Transmission Date: 20230721
  Serious: Yes (Hospitalization, Disabling, Other)
  Sender: FDA-Public Use
  Company Number: CA-SAMSUNG BIOEPIS-SB-2022-07423

PATIENT
  Age: 52 Year
  Sex: Male

DRUGS (5)
  1. HADLIMA [Suspect]
     Active Substance: ADALIMUMAB-BWWD
     Indication: Crohn^s disease
     Dosage: 40 MG/0.8ML
     Route: 065
     Dates: start: 20210829
  2. HYDROMORPHONE [Suspect]
     Active Substance: HYDROMORPHONE
     Indication: Product used for unknown indication
     Dosage: UNKNOWN
     Route: 065
  3. AMLODIPINE [Concomitant]
     Active Substance: AMLODIPINE BESYLATE
     Indication: Product used for unknown indication
     Route: 065
  4. HYDROCHLOROTHIAZIDE [Concomitant]
     Active Substance: HYDROCHLOROTHIAZIDE
     Indication: Product used for unknown indication
     Route: 065
  5. NAPROXEN [Concomitant]
     Active Substance: NAPROXEN
     Indication: Product used for unknown indication
     Route: 065

REACTIONS (8)
  - Intervertebral disc protrusion [Recovering/Resolving]
  - Physical disability [Unknown]
  - COVID-19 [Not Recovered/Not Resolved]
  - Bedridden [Recovered/Resolved]
  - Pain [Recovering/Resolving]
  - Illness [Recovered/Resolved]
  - Weight decreased [Unknown]
  - Fear of death [Recovered/Resolved]

NARRATIVE: CASE EVENT DATE: 20220101
